FAERS Safety Report 10260947 (Version 2)
Quarter: 2014Q2

REPORT INFORMATION
  Report Type: Other
  Country: US (occurrence: US)
  Receive Date: 20140626
  Receipt Date: 20140626
  Transmission Date: 20141212
  Serious: Yes (Hospitalization, Other)
  Sender: FDA-Public Use
  Company Number: US-GSKPPD-2014GSK000317

PATIENT
  Age: 64 Year
  Sex: Female

DRUGS (6)
  1. AVANDIA [Suspect]
     Indication: DIABETES MELLITUS
     Route: 048
     Dates: start: 200306, end: 200705
  2. LASIX [Concomitant]
  3. ASPIRIN [Concomitant]
  4. ENALAPRIL [Concomitant]
  5. COUMADIN [Concomitant]
  6. DIGOXIN [Concomitant]

REACTIONS (2)
  - Cardiac failure congestive [None]
  - Cardiomyopathy [Recovered/Resolved]
